FAERS Safety Report 19227400 (Version 1)
Quarter: 2021Q2

REPORT INFORMATION
  Report Type: Spontaneous
  Country: US (occurrence: US)
  Receive Date: 20210507
  Receipt Date: 20210507
  Transmission Date: 20210717
  Serious: No
  Sender: FDA-Public Use
  Company Number: US-SA-2021SA146348

PATIENT
  Age: 8 Year
  Sex: Male

DRUGS (1)
  1. DUPIXENT [Suspect]
     Active Substance: DUPILUMAB
     Indication: DERMATITIS ATOPIC
     Dosage: 300 MG, Q4W
     Route: 058
     Dates: start: 20210220

REACTIONS (11)
  - Pruritus [Unknown]
  - Nasopharyngitis [Unknown]
  - Erythema [Unknown]
  - Somnolence [Unknown]
  - Abscess [Unknown]
  - Dry skin [Unknown]
  - Skin haemorrhage [Unknown]
  - Skin swelling [Unknown]
  - Infection [Unknown]
  - Dermatitis atopic [Unknown]
  - Product use issue [Unknown]

NARRATIVE: CASE EVENT DATE: 2021
